FAERS Safety Report 10265757 (Version 1)
Quarter: 2014Q2

REPORT INFORMATION
  Report Type: Spontaneous
  Country: US (occurrence: US)
  Receive Date: 20140627
  Receipt Date: 20140627
  Transmission Date: 20141212
  Serious: No
  Sender: FDA-Public Use
  Company Number: US-PFIZER INC-2014178142

PATIENT
  Sex: 0

DRUGS (1)
  1. VIAGRA [Suspect]
     Indication: ERECTILE DYSFUNCTION
     Dosage: UNK
     Dates: start: 1998

REACTIONS (3)
  - Hyperhidrosis [Unknown]
  - Nausea [Unknown]
  - Pyrexia [Unknown]
